FAERS Safety Report 5517997-9 (Version None)
Quarter: 2007Q4

REPORT INFORMATION
  Report Type: 
  Country: None (occurrence: None)
  Receive Date: 20071113
  Receipt Date: 20071021
  Transmission Date: 20080405
  Serious: Yes (Other)
  Sender: FDA-Public Use
  Company Number: AP07-010

PATIENT
  Age: 40 Year
  Sex: Male
  Weight: 84.369 kg

DRUGS (2)
  1. TRAMADOL HCL [Suspect]
     Indication: NEPHROLITHIASIS
     Dosage: 100MG Q.I.D. ORAL
     Route: 048
  2. TRAMADOL HCL [Suspect]
     Indication: PAIN
     Dosage: 100MG Q.I.D. ORAL
     Route: 048

REACTIONS (6)
  - BLOOD GLUCOSE INCREASED [None]
  - HEADACHE [None]
  - HEPATITIS VIRAL [None]
  - NEPHROLITHIASIS [None]
  - PAIN [None]
  - RENAL CYST [None]
